FAERS Safety Report 6024474-8 (Version None)
Quarter: 2008Q4

REPORT INFORMATION
  Report Type: 
  Country: None (occurrence: None)
  Receive Date: 20081231
  Receipt Date: 20080902
  Transmission Date: 20090506
  Serious: No
  Sender: FDA-Public Use
  Company Number: US-BRISTOL-MYERS SQUIBB COMPANY-14318463

PATIENT
  Age: 49 Year
  Sex: Female

DRUGS (3)
  1. ORENCIA [Suspect]
     Indication: RHEUMATOID ARTHRITIS
     Dosage: LAST INFUSION=20AUG08
     Dates: start: 20060801
  2. ARAVA [Concomitant]
  3. STEROIDS [Concomitant]
     Route: 048

REACTIONS (1)
  - RASH PRURITIC [None]
